FAERS Safety Report 11378776 (Version 2)
Quarter: 2015Q3

REPORT INFORMATION
  Report Type: Spontaneous
  Country: US (occurrence: US)
  Receive Date: 20150811
  Receipt Date: 20150903
  Transmission Date: 20151125
  Serious: No
  Sender: FDA-Public Use
  Company Number: US-ELI_LILLY_AND_COMPANY-US200905004916

PATIENT
  Age: 49 Year
  Sex: Female

DRUGS (20)
  1. HUMALOG [Suspect]
     Active Substance: INSULIN LISPRO
     Dosage: 14 U, UNK
  2. HUMULIN 70/30 [Suspect]
     Active Substance: INSULIN HUMAN
     Dosage: UNK, UNKNOWN
  3. LYRICA [Concomitant]
     Active Substance: PREGABALIN
  4. HUMALOG [Suspect]
     Active Substance: INSULIN LISPRO
     Dosage: UNK, AS NEEDED
  5. LANTUS [Concomitant]
     Active Substance: INSULIN GLARGINE
  6. PRILOSEC [Concomitant]
     Active Substance: OMEPRAZOLE MAGNESIUM
  7. HUMALOG [Suspect]
     Active Substance: INSULIN LISPRO
     Dosage: 16 U, UNK
  8. REQUIP [Concomitant]
     Active Substance: ROPINIROLE HYDROCHLORIDE
  9. XANAX [Concomitant]
     Active Substance: ALPRAZOLAM
  10. DESIPRAMINE [Concomitant]
     Active Substance: DESIPRAMINE
  11. LASIX [Concomitant]
     Active Substance: FUROSEMIDE
  12. HUMULIN 70/30 [Suspect]
     Active Substance: INSULIN HUMAN
  13. LISINOPRIL. [Concomitant]
     Active Substance: LISINOPRIL
  14. LEXAPRO [Concomitant]
     Active Substance: ESCITALOPRAM OXALATE
  15. ASACOL [Concomitant]
     Active Substance: MESALAMINE
  16. HYDROMORPHONE [Concomitant]
     Active Substance: HYDROMORPHONE
  17. PLAVIX [Concomitant]
     Active Substance: CLOPIDOGREL BISULFATE
  18. METHADONE [Concomitant]
     Active Substance: METHADONE HYDROCHLORIDE
  19. DOCUSATE [Concomitant]
     Active Substance: DOCUSATE
  20. SENNA-GEN [Concomitant]

REACTIONS (2)
  - Drug dispensing error [Unknown]
  - Dysphonia [Not Recovered/Not Resolved]

NARRATIVE: CASE EVENT DATE: 200902
